FAERS Safety Report 8997074 (Version 1)
Quarter: 2013Q1

REPORT INFORMATION
  Report Type: Spontaneous
  Country: JP (occurrence: JP)
  Receive Date: 20130104
  Receipt Date: 20130104
  Transmission Date: 20140127
  Serious: Yes (Hospitalization, Other)
  Sender: FDA-Public Use
  Company Number: JP-ROCHE-1092284

PATIENT
  Age: 68 Year
  Sex: Female
  Weight: 54 kg

DRUGS (12)
  1. XELODA [Suspect]
     Indication: BREAST CANCER RECURRENT
     Dosage: IT IS ADMINISTER/ONE WEEKLY HOLIDAY MEDICINE FOR THREE WEEKS.
     Route: 048
     Dates: start: 20120629, end: 20120720
  2. OXYCONTIN [Suspect]
     Indication: PAIN MANAGEMENT
     Route: 048
     Dates: start: 20120629
  3. FEMARA [Concomitant]
     Indication: BREAST CANCER RECURRENT
     Route: 048
     Dates: start: 20080919
  4. AMARYL [Concomitant]
     Indication: DIABETES MELLITUS
     Route: 048
  5. ARTIST [Concomitant]
     Indication: HYPERTENSION
     Route: 048
     Dates: start: 20050527
  6. OLMETEC [Concomitant]
     Indication: HYPERTENSION
     Route: 048
     Dates: start: 20070524
  7. PARIET [Concomitant]
     Indication: GASTRIC ULCER
     Route: 048
     Dates: start: 20100927
  8. LIPITOR [Concomitant]
     Indication: HYPERLIPIDAEMIA
     Route: 048
     Dates: start: 20110225
  9. ALLELOCK [Concomitant]
     Indication: RHINITIS ALLERGIC
     Route: 048
     Dates: start: 20110701
  10. CALONAL [Concomitant]
     Indication: PAIN MANAGEMENT
     Route: 048
     Dates: start: 20120316
  11. VILDAGLIPTIN [Concomitant]
     Indication: DIABETES MELLITUS
     Dosage: TRADE NAME- EQUA
     Route: 048
     Dates: start: 20120316
  12. FERROMIA [Concomitant]
     Indication: IRON DEFICIENCY ANAEMIA
     Route: 048
     Dates: start: 20120518

REACTIONS (2)
  - Renal disorder [Recovering/Resolving]
  - Urinary tract infection [Unknown]
